FAERS Safety Report 4576638-8 (Version None)
Quarter: 2005Q1

REPORT INFORMATION
  Report Type: 
  Country: None (occurrence: None)
  Receive Date: 20050127
  Receipt Date: 20041006
  Transmission Date: 20050727
  Serious: No
  Sender: FDA-Public Use
  Company Number: USA041080309

PATIENT
  Age: 35 Year
  Sex: Female
  Weight: 75 kg

DRUGS (4)
  1. STRATTERA [Suspect]
     Indication: ATTENTION DEFICIT/HYPERACTIVITY DISORDER
     Dosage: 18 MG DAY
     Dates: start: 20041005
  2. WELLBUTRIN [Concomitant]
  3. METFORMIN HCL [Concomitant]
  4. TETRACYCLINE [Concomitant]

REACTIONS (5)
  - DISTURBANCE IN ATTENTION [None]
  - DRY MOUTH [None]
  - INSOMNIA [None]
  - PARAESTHESIA [None]
  - STOMACH DISCOMFORT [None]
